FAERS Safety Report 4357293-9 (Version None)
Quarter: 2004Q2

REPORT INFORMATION
  Report Type: 
  Country: None (occurrence: None)
  Receive Date: 20040513
  Receipt Date: 20040407
  Transmission Date: 20050107
  Serious: Yes (Hospitalization, Other)
  Sender: FDA-Public Use
  Company Number: PHEH2004US04002

PATIENT
  Age: 76 Year
  Sex: Male

DRUGS (8)
  1. EXELON [Suspect]
     Indication: PARKINSON'S DISEASE
     Dosage: 6 MG, BID
     Route: 048
     Dates: start: 20030301
  2. COMTAN [Suspect]
     Indication: PARKINSON'S DISEASE
     Dosage: 200 MG, TID
     Route: 048
  3. SINEMET [Suspect]
     Dosage: UNK, Q6H
  4. ZESTRIL [Concomitant]
     Dosage: AM
  5. LANOXIN [Concomitant]
     Dosage: AM
  6. TOPROL-XL [Concomitant]
     Dosage: LATE EVENING
  7. PROZAC [Concomitant]
     Dosage: 20 MG, BID
  8. ASPIRIN [Concomitant]
     Dosage: 81 MG, 2 OD

REACTIONS (14)
  - CONFUSIONAL STATE [None]
  - DEPRESSED LEVEL OF CONSCIOUSNESS [None]
  - DISORIENTATION [None]
  - DIZZINESS [None]
  - DRUG EFFECT DECREASED [None]
  - DYSKINESIA [None]
  - FALL [None]
  - FRACTURED COCCYX [None]
  - GAIT DISTURBANCE [None]
  - HALLUCINATION [None]
  - INSOMNIA [None]
  - MUSCLE RIGIDITY [None]
  - PAIN MANAGEMENT [None]
  - SOMNOLENCE [None]
